FAERS Safety Report 8085449-0 (Version None)
Quarter: 2012Q1

REPORT INFORMATION
  Report Type: 
  Country: None (occurrence: None)
  Receive Date: 20120128
  Receipt Date: 20110411
  Transmission Date: 20120608
  Serious: No
  Sender: FDA-Public Use
  Company Number: US-ABBOTT-11P-163-0705871-00

PATIENT
  Sex: Female
  Weight: 72.64 kg

DRUGS (7)
  1. SPIRONOLACTONE [Concomitant]
     Indication: HEPATIC CIRRHOSIS
  2. HEPATITIS B VACCINE [Concomitant]
     Indication: ANTIVIRAL PROPHYLAXIS
  3. HEPATITIS A VACCINE [Concomitant]
     Indication: ANTIVIRAL PROPHYLAXIS
  4. HUMIRA [Suspect]
     Indication: RHEUMATOID ARTHRITIS
     Route: 058
     Dates: start: 20110216
  5. PLAQUENIL [Concomitant]
     Indication: RHEUMATOID ARTHRITIS
  6. NEURONTIN [Concomitant]
     Indication: RHEUMATOID ARTHRITIS
  7. TRAMADOL HCL [Concomitant]
     Indication: PAIN

REACTIONS (6)
  - URTICARIA [None]
  - INCORRECT DOSE ADMINISTERED [None]
  - INJECTION SITE PAIN [None]
  - DEVICE MALFUNCTION [None]
  - WRONG TECHNIQUE IN DRUG USAGE PROCESS [None]
  - DRUG DOSE OMISSION [None]
